FAERS Safety Report 17600454 (Version 1)
Quarter: 2020Q1

REPORT INFORMATION
  Report Type: Spontaneous
  Country: US (occurrence: US)
  Receive Date: 20200330
  Receipt Date: 20200330
  Transmission Date: 20200409
  Serious: Yes (Other)
  Sender: FDA-Public Use
  Company Number: US-ELI_LILLY_AND_COMPANY-US202003012356

PATIENT
  Sex: Female

DRUGS (4)
  1. BASAGLAR [Suspect]
     Active Substance: INSULIN GLARGINE
     Dosage: 25 U, BID
     Route: 065
     Dates: end: 20200319
  2. BASAGLAR [Suspect]
     Active Substance: INSULIN GLARGINE
     Indication: TYPE 2 DIABETES MELLITUS
     Dosage: 25 U, BID
     Route: 065
     Dates: start: 201809
  3. BASAGLAR [Suspect]
     Active Substance: INSULIN GLARGINE
     Indication: TYPE 2 DIABETES MELLITUS
     Dosage: 25 U, BID
     Route: 065
     Dates: start: 201809
  4. BASAGLAR [Suspect]
     Active Substance: INSULIN GLARGINE
     Dosage: 19 U, BID
     Route: 065
     Dates: start: 20200319

REACTIONS (5)
  - Foot fracture [Recovering/Resolving]
  - Inappropriate schedule of product administration [Unknown]
  - Bone disorder [Unknown]
  - Fall [Unknown]
  - Meniscus injury [Recovering/Resolving]
